FAERS Safety Report 7308666-3 (Version None)
Quarter: 2011Q1

REPORT INFORMATION
  Report Type: 
  Country: None (occurrence: None)
  Receive Date: 20110223
  Receipt Date: 20110209
  Transmission Date: 20110831
  Serious: Yes (Other)
  Sender: FDA-Public Use
  Company Number: PHFR2011GB00930

PATIENT
  Sex: Male

DRUGS (2)
  1. CLOZARIL [Suspect]
     Indication: SCHIZOPHRENIA
     Dosage: UNK
     Route: 048
     Dates: start: 19920428
  2. CLOZARIL [Suspect]
     Dosage: 250 MG, UNK

REACTIONS (2)
  - OESOPHAGEAL CARCINOMA [None]
  - DYSPHAGIA [None]
